FAERS Safety Report 10377059 (Version 31)
Quarter: 2020Q3

REPORT INFORMATION
  Report Type: Other
  Country: CA (occurrence: CA)
  Receive Date: 20140812
  Receipt Date: 20200930
  Transmission Date: 20201102
  Serious: Yes (Hospitalization, Other)
  Sender: FDA-Public Use
  Company Number: CA-ROCHE-1254453

PATIENT
  Age: 65 Year
  Sex: Female
  Weight: 70 kg

DRUGS (26)
  1. ZANTAC [Suspect]
     Active Substance: RANITIDINE HYDROCHLORIDE
     Indication: PRODUCT USED FOR UNKNOWN INDICATION
     Route: 065
  2. OMEPRAZOLE. [Concomitant]
     Active Substance: OMEPRAZOLE
  3. ACTONEL [Concomitant]
     Active Substance: RISEDRONATE SODIUM
  4. DIPHENHYDRAMINE HCL [Concomitant]
     Active Substance: DIPHENHYDRAMINE HYDROCHLORIDE
     Route: 048
     Dates: start: 20160421
  5. METHYLPREDNISOLONE. [Concomitant]
     Active Substance: METHYLPREDNISOLONE
     Route: 042
     Dates: start: 20160421
  6. LOSEC [Concomitant]
     Active Substance: OMEPRAZOLE
  7. PREGABALINE [Concomitant]
     Active Substance: PREGABALIN
  8. RITUXAN [Suspect]
     Active Substance: RITUXIMAB
     Indication: RHEUMATOID ARTHRITIS
     Dosage: DAY 1 AND DAY 15,?LAST INFUSION ON? 19/FEB/2014?LAST INFUSION: 27/NOV/2014, ON 16/AUG/2017, SHE HAD
     Route: 042
     Dates: start: 20130725
  9. RITUXAN [Suspect]
     Active Substance: RITUXIMAB
     Route: 042
     Dates: start: 20160421
  10. HYDROXYCHLOROQUINE [Concomitant]
     Active Substance: HYDROXYCHLOROQUINE
  11. OMEGA 3 [Concomitant]
     Active Substance: OMEGA-3 FATTY ACIDS
  12. VITAMIN C [Concomitant]
     Active Substance: ASCORBIC ACID
  13. METHOTREXATE. [Concomitant]
     Active Substance: METHOTREXATE
  14. AMITRIPTYLINE [Concomitant]
     Active Substance: AMITRIPTYLINE
  15. ACETAMINOPHEN. [Concomitant]
     Active Substance: ACETAMINOPHEN
     Route: 048
     Dates: start: 20160421
  16. ACETAMINOPHEN. [Concomitant]
     Active Substance: ACETAMINOPHEN
     Indication: PREMEDICATION
     Route: 048
     Dates: start: 20130725
  17. DIPHENHYDRAMINE HCL [Concomitant]
     Active Substance: DIPHENHYDRAMINE HYDROCHLORIDE
     Indication: PREMEDICATION
     Route: 048
     Dates: start: 20130725
  18. PROLIA [Concomitant]
     Active Substance: DENOSUMAB
  19. NORTRIPTYLINE [Concomitant]
     Active Substance: NORTRIPTYLINE
  20. VITAMIN C [Concomitant]
     Active Substance: ASCORBIC ACID
  21. PREDNISONE. [Concomitant]
     Active Substance: PREDNISONE
  22. VITAMIN B COMPLEX [Concomitant]
     Active Substance: CYANOCOBALAMIN\DEXPANTHENOL\NIACINAMIDE\PYRIDOXINE HYDROCHLORIDE\RIBOFLAVIN 5^-PHOSPHATE SODIUM\THIAMINE HYDROCHLORIDE\VITAMIN B COMPLEX
  23. METHYLPREDNISOLONE. [Concomitant]
     Active Substance: METHYLPREDNISOLONE
     Indication: PREMEDICATION
     Route: 042
     Dates: start: 20130725
  24. FOLIC ACID. [Concomitant]
     Active Substance: FOLIC ACID
  25. MELOXICAM. [Concomitant]
     Active Substance: MELOXICAM
  26. NEXIUM [Concomitant]
     Active Substance: ESOMEPRAZOLE MAGNESIUM

REACTIONS (33)
  - Arthritis [Not Recovered/Not Resolved]
  - Hypoaesthesia [Not Recovered/Not Resolved]
  - Hypotension [Unknown]
  - Weight decreased [Unknown]
  - Memory impairment [Unknown]
  - Therapeutic product effect decreased [Unknown]
  - Tooth fracture [Recovered/Resolved with Sequelae]
  - Medication error [Unknown]
  - Thermal burn [Unknown]
  - Herpes zoster [Unknown]
  - Abdominal discomfort [Unknown]
  - Urinary retention [Recovering/Resolving]
  - Rheumatoid arthritis [Unknown]
  - Infusion related reaction [Unknown]
  - Infected bite [Recovered/Resolved]
  - Oxygen saturation decreased [Unknown]
  - Drug hypersensitivity [Unknown]
  - Injection site extravasation [Unknown]
  - Peripheral swelling [Unknown]
  - Hypotension [Unknown]
  - Conjunctivitis [Not Recovered/Not Resolved]
  - Thermal burn [Recovered/Resolved with Sequelae]
  - Urinary tract inflammation [Recovering/Resolving]
  - Spinal disorder [Unknown]
  - Pneumonia [Unknown]
  - Fall [Unknown]
  - Joint swelling [Not Recovered/Not Resolved]
  - Body temperature decreased [Unknown]
  - Neuralgia [Not Recovered/Not Resolved]
  - Hip arthroplasty [Unknown]
  - Hip fracture [Recovering/Resolving]
  - Arthralgia [Unknown]
  - Impaired healing [Unknown]

NARRATIVE: CASE EVENT DATE: 20130725
